FAERS Safety Report 21244432 (Version 6)
Quarter: 2022Q4

REPORT INFORMATION
  Report Type: Spontaneous
  Country: JP (occurrence: JP)
  Receive Date: 20220823
  Receipt Date: 20221111
  Transmission Date: 20230113
  Serious: Yes (Death, Other)
  Sender: FDA-Public Use
  Company Number: JP-BRISTOL-MYERS SQUIBB COMPANY-2022-092768

PATIENT
  Age: 54 Year
  Sex: Male

DRUGS (1)
  1. BREYANZI [Suspect]
     Active Substance: LISOCABTAGENE MARALEUCEL
     Indication: Diffuse large B-cell lymphoma
     Route: 041
     Dates: start: 20220516, end: 20220516

REACTIONS (5)
  - Graft versus host disease in gastrointestinal tract [Fatal]
  - Thrombotic microangiopathy [Fatal]
  - Aspergillus infection [Unknown]
  - Enterobacter bacteraemia [Unknown]
  - Bacteroides bacteraemia [Unknown]

NARRATIVE: CASE EVENT DATE: 20220610
